FAERS Safety Report 8402760-1 (Version None)
Quarter: 2012Q2

REPORT INFORMATION
  Report Type: 
  Country: None (occurrence: None)
  Receive Date: 20120601
  Receipt Date: 20120524
  Transmission Date: 20120825
  Serious: Yes (Hospitalization)
  Sender: FDA-Public Use
  Company Number: US-BAYER-2012-044658

PATIENT
  Age: 46 Year
  Sex: Female
  Weight: 58 kg

DRUGS (19)
  1. PENTOTHAL [Concomitant]
     Dosage: 250 MG, UNK
     Route: 042
     Dates: start: 20090625
  2. ROBINUL [Concomitant]
     Dosage: 0.4 MG, UNK
     Route: 042
     Dates: start: 20090625
  3. DILAUDID [Concomitant]
     Dosage: 2 MG, UNK
     Route: 042
     Dates: start: 20090625
  4. VERSED [Concomitant]
     Dosage: 2 MG, UNK
     Route: 042
     Dates: start: 20090625
  5. LEVOXYL [Concomitant]
     Indication: HYPOTHYROIDISM
     Dosage: 25 ?G, 1 PILL, QD
     Dates: start: 19900101
  6. KETAMINE HCL [Concomitant]
     Dosage: 50 MG, UNK
     Route: 042
     Dates: start: 20090625
  7. YASMIN [Suspect]
     Indication: CONTRACEPTION
     Dosage: UNK
     Dates: start: 20011218, end: 20080615
  8. TORADOL [Concomitant]
     Dosage: 30 MG, UNK
     Route: 042
     Dates: start: 20090625
  9. SCOPOLAMINE [Concomitant]
     Dosage: 1.5 MG, UNK
     Route: 061
     Dates: start: 20090625
  10. DROSPIRENONE AND ETHINYL ESTRADIOL [Suspect]
     Indication: CONTRACEPTION
     Dosage: UNK
     Dates: start: 20080701, end: 20090503
  11. EPHEDRINE [Concomitant]
     Dosage: 50 MG, UNK
     Route: 042
     Dates: start: 20090625
  12. ZEMURON [Concomitant]
     Dosage: 100 MG, UNK
     Route: 042
     Dates: start: 20090625
  13. PROPOFOL [Concomitant]
     Dosage: 10 MG, UNK
     Route: 042
     Dates: start: 20090625
  14. NORETHINDRONE ACETATE [Concomitant]
     Dosage: 5 MG, UNK
  15. FIORICET [Concomitant]
  16. MOTRIN [Concomitant]
  17. FENTANYL-100 [Concomitant]
     Dosage: UNK
     Route: 042
     Dates: start: 20090625
  18. YASMIN [Suspect]
     Dosage: UNK
     Dates: start: 20090601
  19. CLEOCIN HYDROCHLORIDE [Concomitant]
     Dosage: 600 MG, UNK
     Route: 042
     Dates: start: 20090625

REACTIONS (5)
  - DYSPNOEA [None]
  - PLEURITIC PAIN [None]
  - PAIN [None]
  - PULMONARY EMBOLISM [None]
  - INJURY [None]
